FAERS Safety Report 10541229 (Version 1)
Quarter: 2014Q4

REPORT INFORMATION
  Report Type: Spontaneous
  Country: US (occurrence: None)
  Receive Date: 20141010
  Receipt Date: 20141010
  Transmission Date: 20150529
  Serious: No
  Sender: FDA-Public Use
  Company Number: 163-POMAL-14080062

PATIENT
  Age: 68 Year
  Sex: Female
  Weight: 69.85 kg

DRUGS (20)
  1. POMALYST [Suspect]
     Active Substance: POMALIDOMIDE
     Indication: PLASMA CELL MYELOMA
     Dosage: 4 MG, 21 IN 28 D, PO
     Route: 048
     Dates: start: 20140603, end: 20140724
  2. JANUVIA (SITAGLIPTIN PHOSPHATE) (UNKNOWN) [Concomitant]
  3. THYROID (THYROID) (UNKNOWN) [Concomitant]
  4. GLIPIZIDE (GLIPIZIDE) (UNKNOWN) [Concomitant]
  5. BUPROPION (BUPROPION) (UNKNOWN) (BUPROPION) [Concomitant]
     Active Substance: BUPROPION
  6. FOLBIC (HEPAGRISEVELT FORTE-N TABLET) (UNKNOWN) [Concomitant]
  7. DEXAMETHASONE (DEXAMETHASONE) (UNKNOWN) [Concomitant]
     Active Substance: DEXAMETHASONE
  8. LIPITOR [Concomitant]
     Active Substance: ATORVASTATIN CALCIUM
  9. DILAUDID (HYDROMORPHONE HYDROCHLORIDE) (2 MILLIGRAM, UNKNOWN) [Concomitant]
  10. VALTREX (VALACICLOVIR HYDROCHLORIDE) (UNKNOWN) [Concomitant]
  11. VITAMIN D (ERGOCALCIFEROL) (UNKNOWN) [Concomitant]
  12. CYMBALTA (DULOXETINE HYDROCHLORIDE) (UNKNOWN) [Concomitant]
  13. ACTOS (PIOGLITAZONE) (UNKNOWN) [Concomitant]
  14. INSULIN (INSULIN) (UNKNOWN) [Concomitant]
  15. FLEXERIL (CYCLOBENZAPRINE HYDROCHLORIDE) (UNKNOWN) [Concomitant]
  16. MIRACLE MOUTHWASH (POVIDONE-IODINE) (UNKNOWN) [Concomitant]
  17. PROTONIX (UNKNOWN) [Concomitant]
  18. OXYCONTIN (OXYCODONE HYDROCHLORIDE) (20 MILLIGRAM, TABLETS) [Concomitant]
  19. ASPRIN [Concomitant]
     Active Substance: ASPIRIN
  20. LOPRESSOR (METOPROLOL TARTRATE) (UNKNOWN) [Concomitant]

REACTIONS (9)
  - Memory impairment [None]
  - Fatigue [None]
  - Decreased appetite [None]
  - Asthenia [None]
  - White blood cell count decreased [None]
  - Blood creatinine increased [None]
  - Nausea [None]
  - Dizziness [None]
  - Confusional state [None]

NARRATIVE: CASE EVENT DATE: 2014
